FAERS Safety Report 7625206-X (Version None)
Quarter: 2011Q3

REPORT INFORMATION
  Report Type: 
  Country: None (occurrence: None)
  Receive Date: 20110701
  Receipt Date: 20100624
  Transmission Date: 20111222
  Serious: Yes (Other)
  Sender: FDA-Public Use
  Company Number: 7009201

PATIENT
  Age: 39 Year
  Sex: Female

DRUGS (1)
  1. REBIF [Suspect]
     Indication: MULTIPLE SCLEROSIS
     Dosage: 44 MCG, 3 IN 1 WK, SUBCUTANEOUS
     Route: 058
     Dates: start: 20040714, end: 20100101

REACTIONS (4)
  - INJECTION SITE PAIN [None]
  - INJECTION SITE DISCOLOURATION [None]
  - DEPRESSION [None]
  - SUICIDAL IDEATION [None]
